FAERS Safety Report 25913129 (Version 1)
Quarter: 2025Q4

REPORT INFORMATION
  Report Type: Spontaneous
  Country: US (occurrence: US)
  Receive Date: 20251013
  Receipt Date: 20251013
  Transmission Date: 20260118
  Serious: No
  Sender: AMGEN
  Company Number: US-AMGEN-USASP2025199880

PATIENT
  Sex: Female

DRUGS (1)
  1. AMJEVITA [Suspect]
     Active Substance: ADALIMUMAB-ATTO
     Indication: Product used for unknown indication
     Dosage: UNK, 80MG/0.8MLX2(AMG)
     Route: 065

REACTIONS (3)
  - Condition aggravated [Unknown]
  - Device difficult to use [Unknown]
  - Drug dose omission by device [Unknown]
